FAERS Safety Report 4791541-6 (Version None)
Quarter: 2005Q4

REPORT INFORMATION
  Report Type: 
  Country: None (occurrence: None)
  Receive Date: 20051007
  Receipt Date: 20050202
  Transmission Date: 20060501
  Serious: No
  Sender: FDA-Public Use
  Company Number: US-BRISTOL-MYERS SQUIBB COMPANY-12845863

PATIENT
  Age: 73 Year
  Sex: Male

DRUGS (6)
  1. AVAPRO [Suspect]
     Indication: HYPERTENSION
     Dosage: ON 300MG DAILY FOR YEARS
     Dates: end: 20050128
  2. METOLAZONE [Concomitant]
  3. ZETIA [Concomitant]
  4. THEO-DUR [Concomitant]
  5. AMARYL [Concomitant]
  6. PACERONE [Concomitant]

REACTIONS (2)
  - SWELLING FACE [None]
  - SWOLLEN TONGUE [None]
